FAERS Safety Report 9314086 (Version 2)
Quarter: 2013Q3

REPORT INFORMATION
  Report Type: Spontaneous
  Country: JP (occurrence: JP)
  Receive Date: 20130529
  Receipt Date: 20130701
  Transmission Date: 20140515
  Serious: Yes (Other)
  Sender: FDA-Public Use
  Company Number: JP-JNJFOC-20130513990

PATIENT
  Age: 73 Year
  Sex: Male
  Weight: 59 kg

DRUGS (5)
  1. XARELTO [Suspect]
     Indication: CEREBROVASCULAR ACCIDENT PROPHYLAXIS
     Route: 048
  2. XARELTO [Suspect]
     Indication: CEREBROVASCULAR ACCIDENT PROPHYLAXIS
     Route: 048
     Dates: start: 20130326
  3. PLAVIX [Concomitant]
     Route: 048
     Dates: start: 20130326
  4. CRESTOR [Concomitant]
     Route: 048
     Dates: start: 20130326
  5. DIART [Concomitant]
     Route: 048
     Dates: start: 20130516

REACTIONS (1)
  - Cerebral infarction [Recovering/Resolving]
